FAERS Safety Report 15152877 (Version 1)
Quarter: 2018Q3

REPORT INFORMATION
  Report Type: Spontaneous
  Country: US (occurrence: US)
  Receive Date: 20180619
  Receipt Date: 20180619
  Transmission Date: 20181010
  Serious: Yes (Other)
  Sender: FDA-Public Use
  Company Number: None

PATIENT
  Age: 78 Year
  Sex: Female
  Weight: 76.5 kg

DRUGS (10)
  1. LEVOTHYROXIN [Concomitant]
     Active Substance: LEVOTHYROXINE
  2. REPATHA [Suspect]
     Active Substance: EVOLOCUMAB
     Indication: BLOOD CHOLESTEROL
     Dosage: ?          QUANTITY:2 INJECTION(S);OTHER FREQUENCY:2 WEEKS;?
     Route: 030
     Dates: start: 20180427, end: 20180428
  3. CPAP [Concomitant]
     Active Substance: DEVICE
  4. QVAR [Concomitant]
     Active Substance: BECLOMETHASONE DIPROPIONATE
  5. TUMERIC/BROMELAIN [Concomitant]
  6. LOSARTAN. [Concomitant]
     Active Substance: LOSARTAN
  7. RUTIN [Concomitant]
     Active Substance: RUTIN
  8. VITAMIN D3 [Concomitant]
     Active Substance: CHOLECALCIFEROL
  9. HYALURONIC ACID [Concomitant]
     Active Substance: HYALURONIC ACID
  10. COQ10 [Concomitant]
     Active Substance: UBIDECARENONE

REACTIONS (11)
  - Nasopharyngitis [None]
  - Depression [None]
  - Headache [None]
  - Nausea [None]
  - Sleep disorder [None]
  - Influenza [None]
  - Myalgia [None]
  - Abdominal distension [None]
  - Back pain [None]
  - Sleep apnoea syndrome [None]
  - Pain in extremity [None]

NARRATIVE: CASE EVENT DATE: 20180427
